FAERS Safety Report 9250354 (Version 1)
Quarter: 2013Q2

REPORT INFORMATION
  Report Type: Spontaneous
  Country: DE (occurrence: DE)
  Receive Date: 20130424
  Receipt Date: 20130424
  Transmission Date: 20140414
  Serious: Yes (Other)
  Sender: FDA-Public Use
  Company Number: DE-ROCHE-1216578

PATIENT
  Sex: Female

DRUGS (2)
  1. TAMIFLU [Suspect]
     Indication: INFECTION
     Route: 065
     Dates: start: 201303
  2. CLEXANE [Concomitant]
     Indication: THROMBOSIS PROPHYLAXIS

REACTIONS (2)
  - Polyneuropathy [Not Recovered/Not Resolved]
  - Nerve conduction studies abnormal [Not Recovered/Not Resolved]
